FAERS Safety Report 4570856-0 (Version None)
Quarter: 2005Q1

REPORT INFORMATION
  Report Type: 
  Country: None (occurrence: None)
  Receive Date: 20050118
  Receipt Date: 20031202
  Transmission Date: 20050727
  Serious: Yes (Other)
  Sender: FDA-Public Use
  Company Number: HQWYE388703DEC03

PATIENT
  Age: 60 Year
  Sex: Female
  Weight: 72.64 kg

DRUGS (1)
  1. PREMPRO [Suspect]
     Indication: PROPHYLAXIS
     Dosage: 1 TABLET DAILY; 0.625MG/2.5MG, ORAL
     Route: 048
     Dates: start: 19950101

REACTIONS (1)
  - BREAST CANCER [None]
